FAERS Safety Report 7659780-4 (Version None)
Quarter: 2011Q3

REPORT INFORMATION
  Report Type: 
  Country: None (occurrence: None)
  Receive Date: 20110805
  Receipt Date: 20110729
  Transmission Date: 20111222
  Serious: Yes (Hospitalization)
  Sender: FDA-Public Use
  Company Number: PHHY2011MW70023

PATIENT
  Age: 65 Year
  Sex: Male
  Weight: 70 kg

DRUGS (7)
  1. PREDNISONE [Concomitant]
     Dosage: 12.5 MG, UNK
  2. LISINOPRIL [Concomitant]
     Dosage: 5 MG, UNK
  3. WARFARIN SODIUM [Suspect]
     Dosage: 5 MG (AND 2.5 MG DAILY ON ALTERNATIVE DAYS)
  4. PRAVASTATIN SODIUM [Suspect]
     Dosage: UNK UKN, UNK
     Route: 065
     Dates: start: 20110101
  5. WARFARIN SODIUM [Suspect]
     Dosage: 2.5 MG 5 MG (AND 5 MG DAILY ON ALTERNATIVE DAYS)
  6. OMEPRAZOLE [Concomitant]
     Dosage: 20 MG, UNK
  7. AZATHIOPRINE [Concomitant]
     Dosage: 50 MG, UNK

REACTIONS (4)
  - EPISTAXIS [None]
  - DRUG INTERACTION [None]
  - INTERNATIONAL NORMALISED RATIO INCREASED [None]
  - CONJUNCTIVAL HAEMORRHAGE [None]
